FAERS Safety Report 14229164 (Version 2)
Quarter: 2017Q4

REPORT INFORMATION
  Report Type: Spontaneous
  Country: MX (occurrence: MX)
  Receive Date: 20171128
  Receipt Date: 20171214
  Transmission Date: 20180321
  Serious: Yes (Other)
  Sender: FDA-Public Use
  Company Number: MX-UCBSA-2017042640

PATIENT
  Sex: Female
  Weight: 13 kg

DRUGS (4)
  1. CLONAZEPAM. [Concomitant]
     Active Substance: CLONAZEPAM
     Indication: PRODUCT USED FOR UNKNOWN INDICATION
     Dosage: 6 DROPS AT NIGHT, ONCE DAILY (QD)
  2. BRIVIACT [Suspect]
     Active Substance: BRIVARACETAM
     Indication: LENNOX-GASTAUT SYNDROME
     Dosage: 100 MG (? OF A TABLET), 2X/DAY (BID)
     Route: 048
  3. VIMPAT [Suspect]
     Active Substance: LACOSAMIDE
     Indication: LENNOX-GASTAUT SYNDROME
     Dosage: 50 MG (1 AND ? OF TABLETS), 2X/DAY (BID)
     Route: 048
  4. TOPIRAMATE. [Concomitant]
     Active Substance: TOPIRAMATE
     Indication: PRODUCT USED FOR UNKNOWN INDICATION
     Dosage: 25 MG (2 AND ? OF TABLETS), 2X/DAY (BID)

REACTIONS (3)
  - Fatigue [Unknown]
  - Tachycardia [Recovered/Resolved]
  - Off label use [Unknown]
